FAERS Safety Report 14235970 (Version 1)
Quarter: 2017Q4

REPORT INFORMATION
  Report Type: Spontaneous
  Country: TH (occurrence: TH)
  Receive Date: 20171129
  Receipt Date: 20171129
  Transmission Date: 20180321
  Serious: Yes (Death, Hospitalization, Other)
  Sender: FDA-Public Use
  Company Number: TH-BAYER-2017-224237

PATIENT
  Age: 78 Year
  Sex: Male

DRUGS (4)
  1. STIVARGA [Suspect]
     Active Substance: REGORAFENIB
     Indication: HEPATOCELLULAR CARCINOMA
     Dosage: 120 MG, QD
  2. STIVARGA [Suspect]
     Active Substance: REGORAFENIB
     Indication: HEPATOCELLULAR CARCINOMA
     Dosage: 80 MG, QD
  3. NEXAVAR [Suspect]
     Active Substance: SORAFENIB
     Indication: HEPATOCELLULAR CARCINOMA
     Dosage: 400 MG, BID
     Dates: start: 201610
  4. STIVARGA [Suspect]
     Active Substance: REGORAFENIB
     Indication: HEPATOCELLULAR CARCINOMA
     Dosage: 160 MG, QD

REACTIONS (13)
  - Death [Fatal]
  - General physical health deterioration [None]
  - Hepatocellular carcinoma [None]
  - Diarrhoea [None]
  - Hyponatraemia [None]
  - Hepatic cirrhosis [None]
  - Peritoneal haemorrhage [None]
  - Pulmonary mass [None]
  - Weight decreased [None]
  - Acute kidney injury [None]
  - Haemorrhagic anaemia [None]
  - Ascites [None]
  - Oesophageal varices haemorrhage [None]
